FAERS Safety Report 6977071-1 (Version None)
Quarter: 2010Q3

REPORT INFORMATION
  Report Type: 
  Country: None (occurrence: None)
  Receive Date: 20100910
  Receipt Date: 20100906
  Transmission Date: 20110219
  Serious: Yes (Hospitalization)
  Sender: FDA-Public Use
  Company Number: FR-BRISTOL-MYERS SQUIBB COMPANY-15275498

PATIENT
  Age: 63 Year
  Sex: Female

DRUGS (4)
  1. HYDREA [Suspect]
     Indication: CHRONIC MYELOID LEUKAEMIA
     Dates: start: 20000101
  2. TAHOR [Concomitant]
  3. LODOZ [Concomitant]
  4. IRBESARTAN [Concomitant]

REACTIONS (3)
  - GAIT DISTURBANCE [None]
  - PAIN [None]
  - SKIN ULCER [None]
